FAERS Safety Report 6970705-7 (Version None)
Quarter: 2010Q3

REPORT INFORMATION
  Report Type: 
  Country: None (occurrence: None)
  Receive Date: 20100908
  Receipt Date: 20100830
  Transmission Date: 20110219
  Serious: No
  Sender: FDA-Public Use
  Company Number: US-JNJFOC-20100900855

PATIENT
  Sex: Female
  Weight: 136.08 kg

DRUGS (9)
  1. DURAGESIC-100 [Suspect]
     Indication: PAIN
     Route: 062
  2. TOPAMAX [Concomitant]
     Indication: DEPRESSION
     Route: 048
  3. ALL OTHER THERAPEUTICS [Concomitant]
     Indication: HYPERTENSION
     Route: 048
  4. CYMBALTA [Concomitant]
     Indication: DEPRESSION
     Route: 048
  5. SEROQUEL [Concomitant]
     Indication: DEPRESSION
     Route: 048
  6. SEROQUEL [Concomitant]
     Indication: SLEEP DISORDER
     Route: 048
  7. ALL OTHER THERAPEUTICS [Concomitant]
     Indication: DIABETES MELLITUS
     Route: 048
  8. ALL OTHER THERAPEUTICS [Concomitant]
     Indication: THYROID DISORDER
     Route: 048
  9. ALL OTHER THERAPEUTICS [Concomitant]
     Indication: BIPOLAR DISORDER
     Route: 048

REACTIONS (3)
  - DERMATITIS CONTACT [None]
  - PRODUCT ADHESION ISSUE [None]
  - WRONG TECHNIQUE IN DRUG USAGE PROCESS [None]
